FAERS Safety Report 9137947 (Version 3)
Quarter: 2013Q2

REPORT INFORMATION
  Report Type: Spontaneous
  Country: SE (occurrence: SE)
  Receive Date: 20130304
  Receipt Date: 20130408
  Transmission Date: 20140414
  Serious: Yes (Other)
  Sender: FDA-Public Use
  Company Number: SE-ELI_LILLY_AND_COMPANY-SE201302008064

PATIENT
  Age: 18 Year
  Sex: Female

DRUGS (5)
  1. STRATTERA [Suspect]
     Indication: ATTENTION DEFICIT/HYPERACTIVITY DISORDER
  2. GIONA [Concomitant]
     Dosage: 200 UG, QD
  3. LORATADIN [Concomitant]
  4. BETAPRED [Concomitant]
  5. BUVENTOL [Concomitant]
     Dosage: 100 UG, QD

REACTIONS (9)
  - Anaphylactic reaction [Recovered/Resolved]
  - Dizziness [Recovered/Resolved]
  - Somnolence [Recovered/Resolved]
  - Fatigue [Recovered/Resolved]
  - Conjunctivitis [Recovered/Resolved]
  - Micturition disorder [Unknown]
  - Seasonal allergy [Recovered/Resolved]
  - Pallor [Recovered/Resolved]
  - Peak expiratory flow rate decreased [Recovered/Resolved]
